FAERS Safety Report 15839635 (Version 1)
Quarter: 2019Q1

REPORT INFORMATION
  Report Type: Spontaneous
  Country: GB (occurrence: GB)
  Receive Date: 20190117
  Receipt Date: 20190117
  Transmission Date: 20190417
  Serious: Yes (Disabling, Other)
  Sender: FDA-Public Use
  Company Number: GB-TEVA-2019-GB-999868

PATIENT
  Age: 22 Year
  Sex: Female

DRUGS (5)
  1. LANSOPRAZOLE. [Concomitant]
     Active Substance: LANSOPRAZOLE
  2. DIAZEPAM. [Concomitant]
     Active Substance: DIAZEPAM
  3. KALMS [Concomitant]
     Active Substance: HERBALS
     Dosage: 1 DOSAGE FORMS DAILY; NIGHT
  4. SLEEPEEZY VALERIAN [Concomitant]
  5. ESCITALOPRAM [Suspect]
     Active Substance: ESCITALOPRAM OXALATE
     Route: 048
     Dates: start: 20181201, end: 20181206

REACTIONS (4)
  - Insomnia [Not Recovered/Not Resolved]
  - Anxiety [Not Recovered/Not Resolved]
  - Tension [Unknown]
  - Irritability [Not Recovered/Not Resolved]

NARRATIVE: CASE EVENT DATE: 20181201
